FAERS Safety Report 4791955-4 (Version None)
Quarter: 2005Q4

REPORT INFORMATION
  Report Type: 
  Country: None (occurrence: None)
  Receive Date: 20051005
  Receipt Date: 20050916
  Transmission Date: 20060501
  Serious: Yes (Other)
  Sender: FDA-Public Use
  Company Number: EWC050945950

PATIENT
  Age: 71 Year
  Sex: Male

DRUGS (7)
  1. CIALIS [Suspect]
     Indication: ERECTILE DYSFUNCTION
     Dosage: 20 MG/3 WEEK
     Dates: start: 20030801, end: 20050801
  2. LANTUS [Concomitant]
  3. NOVONORM (REPAGLINIDE) [Concomitant]
  4. GLUCOPHAGE [Concomitant]
  5. PIOGLITAZONE HCL [Concomitant]
  6. ENALAPRIL [Concomitant]
  7. ASPIRIN [Concomitant]

REACTIONS (1)
  - OPTIC ISCHAEMIC NEUROPATHY [None]
